FAERS Safety Report 8305206-7 (Version None)
Quarter: 2012Q1

REPORT INFORMATION
  Report Type: 
  Country: None (occurrence: None)
  Receive Date: 20120326
  Receipt Date: 20111201
  Transmission Date: 20120608
  Serious: Yes (Other)
  Sender: FDA-Public Use
  Company Number: PHHY2011US12623

PATIENT
  Age: 65 Year
  Sex: Male

DRUGS (20)
  1. GLEEVEC [Suspect]
  2. ASPIRIN 89 (ACETYLSALICYLIC ACID) [Concomitant]
  3. LISINOPRIL [Concomitant]
  4. METOPROLOL TARTRATE [Concomitant]
  5. ZETIA [Concomitant]
  6. HYDRALAZINE (CURRENTLY ON) (HYDRALAZINE) [Concomitant]
  7. TASIGNA [Suspect]
  8. TRICOR (FENOFBIRATE) [Concomitant]
  9. THERAGRAN-M (MINERAL NOS, VITAMINS NOS) [Concomitant]
  10. SIMVASTATIN [Concomitant]
  11. SPRYCEL [Suspect]
     Dosage: 100 MG, DAILY ; 20 MG, DAILY ; 40 MG, DAILY
  12. LASIX [Concomitant]
  13. ANDROGEL [Concomitant]
  14. KENALOG [Concomitant]
  15. LOVAZA [Concomitant]
  16. CRESTOR [Concomitant]
  17. BUPROPION HCL [Concomitant]
  18. OXYCODONE HCL [Concomitant]
  19. ASPIRIN [Concomitant]
  20. CLONAZEPAM [Concomitant]

REACTIONS (2)
  - LIPIDS INCREASED [None]
  - PANCREATITIS [None]
